FAERS Safety Report 6814464-7 (Version None)
Quarter: 2010Q3

REPORT INFORMATION
  Report Type: 
  Country: None (occurrence: None)
  Receive Date: 20100702
  Receipt Date: 20100628
  Transmission Date: 20110219
  Serious: Yes (Other)
  Sender: FDA-Public Use
  Company Number: PHHY2010US28998

PATIENT
  Sex: Female

DRUGS (2)
  1. RECLAST [Suspect]
     Indication: OSTEOPOROSIS
     Dosage: 5 MG
     Dates: start: 20090101, end: 20100208
  2. RECLAST [Suspect]
     Dosage: 5 MG
     Dates: start: 20100208

REACTIONS (2)
  - JAW DISORDER [None]
  - PERIODONTAL DISEASE [None]
